FAERS Safety Report 4442992-0 (Version None)
Quarter: 2004Q3

REPORT INFORMATION
  Report Type: 
  Country: None (occurrence: None)
  Receive Date: 20040908
  Receipt Date: 20040831
  Transmission Date: 20050211
  Serious: Yes (Other)
  Sender: FDA-Public Use
  Company Number: PHBS2004JP11651

PATIENT
  Age: 84 Year
  Sex: Male

DRUGS (6)
  1. LAMISIL [Suspect]
     Indication: NAIL TINEA
     Dosage: 125 MG/DAY
     Route: 048
     Dates: start: 20040512, end: 20040826
  2. SYMMETREL [Concomitant]
     Dosage: 150 MG/DAY
     Route: 048
     Dates: start: 20020924, end: 20040826
  3. ARTANE [Concomitant]
     Dosage: 4 MG/DAY
     Route: 048
     Dates: start: 20020924
  4. TEGRETOL [Concomitant]
     Dosage: 200 MG/DAY
     Route: 048
     Dates: start: 20040825
  5. LENDORM [Concomitant]
     Dosage: 0.5 MG/DAY
     Route: 048
     Dates: start: 20020924
  6. GRAMALIL [Concomitant]
     Dosage: 50 MG/DAY
     Route: 048
     Dates: start: 20020924

REACTIONS (4)
  - BLOOD CREATINE PHOSPHOKINASE INCREASED [None]
  - MYOGLOBINURIA [None]
  - RHABDOMYOLYSIS [None]
  - TREMOR [None]
